FAERS Safety Report 4417463-8 (Version None)
Quarter: 2004Q3

REPORT INFORMATION
  Report Type: 
  Country: None (occurrence: None)
  Receive Date: 20040803
  Receipt Date: 20040719
  Transmission Date: 20050211
  Serious: Yes (Other)
  Sender: FDA-Public Use
  Company Number: P2004000008

PATIENT
  Age: 89 Year
  Sex: Male

DRUGS (3)
  1. PLENAXIS [Suspect]
     Indication: PROSTATE CANCER
     Dosage: 100 MG, SINGLE, INTRAMUSCULAR
     Route: 030
     Dates: start: 20040707, end: 20040707
  2. DEMADEX [Concomitant]
  3. LACTULOSE [Concomitant]

REACTIONS (8)
  - BLOOD PRESSURE DECREASED [None]
  - COMA [None]
  - ERYTHEMA [None]
  - FLUSHING [None]
  - HEART RATE INCREASED [None]
  - HYPERHIDROSIS [None]
  - PALLOR [None]
  - SYNCOPE [None]
